FAERS Safety Report 23637157 (Version 1)
Quarter: 2024Q1

REPORT INFORMATION
  Report Type: Spontaneous
  Country: US (occurrence: US)
  Receive Date: 20240315
  Receipt Date: 20240315
  Transmission Date: 20240410
  Serious: No
  Sender: FDA-Public Use
  Company Number: US-TEVA-VS-3161765

PATIENT
  Age: 70 Year
  Sex: Female

DRUGS (4)
  1. COPAXONE [Suspect]
     Active Substance: GLATIRAMER ACETATE
     Indication: Product used for unknown indication
     Route: 065
  2. COPAXONE [Suspect]
     Active Substance: GLATIRAMER ACETATE
  3. ACTHAR [Concomitant]
     Active Substance: CORTICOTROPIN
     Indication: Product use in unapproved indication
     Route: 065
  4. OCREVUS [Concomitant]
     Active Substance: OCRELIZUMAB
     Indication: Product use in unapproved indication
     Route: 065

REACTIONS (1)
  - Urticaria [Unknown]
